FAERS Safety Report 9911546 (Version 1)
Quarter: 2014Q1

REPORT INFORMATION
  Report Type: Spontaneous
  Country: NL (occurrence: NL)
  Receive Date: 20140219
  Receipt Date: 20140219
  Transmission Date: 20141002
  Serious: Yes (Other)
  Sender: FDA-Public Use
  Company Number: PHHY2014NL012553

PATIENT
  Sex: Male

DRUGS (1)
  1. RITALIN [Suspect]
     Dosage: 25 MG, BID
     Dates: start: 20140127

REACTIONS (2)
  - Intentional drug misuse [Unknown]
  - Feeling of relaxation [Unknown]
